FAERS Safety Report 20674182 (Version 1)
Quarter: 2022Q2

REPORT INFORMATION
  Report Type: Spontaneous
  Country: KR (occurrence: KR)
  Receive Date: 20220405
  Receipt Date: 20220405
  Transmission Date: 20220720
  Serious: Yes (Death)
  Sender: FDA-Public Use
  Company Number: KR-PFIZER INC-202200469606

PATIENT
  Sex: Male

DRUGS (11)
  1. IBRANCE [Suspect]
     Active Substance: PALBOCICLIB
     Indication: Soft tissue sarcoma
     Dosage: 125 MG, CYCLIC (1X/DAY FOR 21 DAYS; 3 WEEKS ON AND 1 WEEK OFF)
     Route: 048
  2. ZOLPIDEM TARTRATE [Concomitant]
     Active Substance: ZOLPIDEM TARTRATE
     Dosage: 6.25 MG, 1X/DAY
     Route: 048
  3. CETAMADOL [Concomitant]
     Dosage: 1 DF, 2X/DAY
     Route: 048
  4. NEURONTIN [Concomitant]
     Active Substance: GABAPENTIN
     Dosage: 300 MG, 2X/DAY
     Route: 048
  5. CELEBREX [Concomitant]
     Active Substance: CELECOXIB
     Dosage: 100 MG, 3X/DAY
     Route: 048
  6. NUCYNTA ER [Concomitant]
     Active Substance: TAPENTADOL HYDROCHLORIDE
     Dosage: 50 MG, 2X/DAY
     Route: 048
  7. NALOXONE HYDROCHLORIDE\OXYCODONE HYDROCHLORIDE [Concomitant]
     Active Substance: NALOXONE HYDROCHLORIDE\OXYCODONE HYDROCHLORIDE
     Dosage: 1 DF, 3X/DAY
     Route: 048
  8. DULACKHAN EASY [Concomitant]
     Dosage: 15ML/PKG, 2X/DAY FOR 21 DAYS, TAKE AS NEEDED
     Route: 048
  9. RABIET [Concomitant]
     Dosage: 10 MG, 1X/DAY
     Route: 048
  10. SULFAMETHOXAZOLE\TRIMETHOPRIM [Concomitant]
     Active Substance: SULFAMETHOXAZOLE\TRIMETHOPRIM
     Dosage: 1 DF, 1X/DAY
     Route: 048
  11. YUHAN DEXAMETHASONE [Concomitant]
     Dosage: 1 MG, 2X/DAY
     Route: 048

REACTIONS (2)
  - COVID-19 pneumonia [Fatal]
  - Off label use [Unknown]
